FAERS Safety Report 24720883 (Version 1)
Quarter: 2024Q4

REPORT INFORMATION
  Report Type: Spontaneous
  Country: GB (occurrence: GB)
  Receive Date: 20241211
  Receipt Date: 20241211
  Transmission Date: 20250115
  Serious: Yes (Life-Threatening, Other)
  Sender: AUROBINDO
  Company Number: GB-MHRA-MED-202411271525328680-JTPMB

PATIENT
  Age: 60 Year
  Sex: Male
  Weight: 112 kg

DRUGS (4)
  1. GABAPENTIN [Suspect]
     Active Substance: GABAPENTIN
     Indication: Product used for unknown indication
     Dosage: 900 MILLIGRAM, 3 TIMES A DAY [900MG TDS]
     Route: 065
     Dates: start: 2016
  2. TRAMADOL [Suspect]
     Active Substance: TRAMADOL
     Indication: Product used for unknown indication
     Dosage: UNK, ONCE A DAY [300MG - 400MG/DAY]
     Route: 065
  3. MIRTAZAPINE [Suspect]
     Active Substance: MIRTAZAPINE
     Indication: Product used for unknown indication
     Dosage: 30 MILLIGRAM [30MG NOCTE]
     Route: 065
  4. AMITRIPTYLINE [Suspect]
     Active Substance: AMITRIPTYLINE
     Indication: Product used for unknown indication
     Dosage: 30 MILLIGRAM [30MG NOCTE]
     Route: 065

REACTIONS (1)
  - Respiratory depression [Not Recovered/Not Resolved]
